FAERS Safety Report 9463257 (Version 2)
Quarter: 2013Q3

REPORT INFORMATION
  Report Type: Spontaneous
  Country: PL (occurrence: PL)
  Receive Date: 20130819
  Receipt Date: 20130819
  Transmission Date: 20140515
  Serious: Yes (Other)
  Sender: FDA-Public Use
  Company Number: PL-PFIZER INC-2013202238

PATIENT
  Age: 54 Month
  Sex: Male

DRUGS (7)
  1. SOLU-MEDROL [Suspect]
     Indication: SCHIMKE IMMUNOOSSEOUS DYSPLASIA
     Dosage: 15 MG/KG IN PULSES
  2. RAMIPRIL [Suspect]
     Indication: SCHIMKE IMMUNOOSSEOUS DYSPLASIA
     Dosage: UNK
  3. CYCLOSPORIN A [Suspect]
     Indication: SCHIMKE IMMUNOOSSEOUS DYSPLASIA
     Dosage: UNK
  4. CYCLOSPORIN A [Suspect]
     Indication: NEPHROTIC SYNDROME
  5. XARTAN [Suspect]
     Indication: SCHIMKE IMMUNOOSSEOUS DYSPLASIA
     Route: 065
  6. MYCOPHENOLATE MOFETIL [Concomitant]
     Indication: NEPHROTIC SYNDROME
  7. FOLIC ACID [Concomitant]

REACTIONS (2)
  - Anaemia [Recovered/Resolved]
  - Drug ineffective [Unknown]
